FAERS Safety Report 18161112 (Version 1)
Quarter: 2020Q3

REPORT INFORMATION
  Report Type: Spontaneous
  Country: US (occurrence: US)
  Receive Date: 20200817
  Receipt Date: 20200817
  Transmission Date: 20201103
  Serious: Yes (Hospitalization)
  Sender: FDA-Public Use
  Company Number: None

PATIENT
  Age: 66 Year
  Sex: Female
  Weight: 89.42 kg

DRUGS (7)
  1. TYLENOL [Concomitant]
     Active Substance: ACETAMINOPHEN
  2. TAFINLAR [Suspect]
     Active Substance: DABRAFENIB MESYLATE
     Indication: MALIGNANT MELANOMA
     Route: 048
     Dates: start: 20200615, end: 20200817
  3. OMEPRAZOLE 40MG [Concomitant]
     Active Substance: OMEPRAZOLE
  4. MEKINIST [Suspect]
     Active Substance: TRAMETINIB DIMETHYL SULFOXIDE
     Indication: MALIGNANT MELANOMA
     Route: 048
     Dates: start: 20200429, end: 20200817
  5. DULOXETINE 30MG [Concomitant]
     Active Substance: DULOXETINE
  6. BACLOFEN 10MG [Concomitant]
     Active Substance: BACLOFEN
  7. CALCIUM/VITAMIN D [Concomitant]
     Active Substance: CALCIUM\VITAMIN D

REACTIONS (6)
  - Urinary tract infection [None]
  - Cystitis [None]
  - Vision blurred [None]
  - Blood potassium decreased [None]
  - Headache [None]
  - Dehydration [None]

NARRATIVE: CASE EVENT DATE: 20200817
